FAERS Safety Report 19401422 (Version 1)
Quarter: 2021Q2

REPORT INFORMATION
  Report Type: Spontaneous
  Country: US (occurrence: US)
  Receive Date: 20210610
  Receipt Date: 20210610
  Transmission Date: 20210717
  Serious: No
  Sender: FDA-Public Use
  Company Number: US-GLAXOSMITHKLINE-USCH2021AMR036368

PATIENT
  Sex: Female

DRUGS (1)
  1. NICOTINE. [Suspect]
     Active Substance: NICOTINE
     Indication: SMOKING CESSATION THERAPY
     Dosage: UNK

REACTIONS (7)
  - Application site erythema [Unknown]
  - Application site pain [Unknown]
  - Skin wrinkling [Unknown]
  - Skin lesion [Unknown]
  - Skin discolouration [Unknown]
  - Blister [Unknown]
  - Application site swelling [Unknown]
